FAERS Safety Report 8588049-9 (Version None)
Quarter: 2012Q3

REPORT INFORMATION
  Report Type: 
  Country: None (occurrence: None)
  Receive Date: 20120813
  Receipt Date: 20120807
  Transmission Date: 20120928
  Serious: No
  Sender: FDA-Public Use
  Company Number: US-PFIZER INC-2012193742

PATIENT
  Age: 46 Year
  Sex: Female
  Weight: 95.238 kg

DRUGS (9)
  1. ALLOPURINOL [Concomitant]
     Indication: BLOOD URIC ACID INCREASED
     Dosage: 100 MG, 2X/DAY
  2. LASIX [Concomitant]
     Indication: CARDIAC FAILURE CONGESTIVE
     Dosage: 20 MG, DAILY
     Route: 048
  3. LYRICA [Suspect]
     Indication: FIBROMYALGIA
     Dosage: 150 MG, 2X/DAY
     Route: 048
  4. LYRICA [Suspect]
     Indication: NEURALGIA
  5. PROZAC [Concomitant]
     Indication: DEPRESSION
     Dosage: 40 MG, DAILY
  6. OXYCODONE [Concomitant]
     Indication: PAIN
     Dosage: 50 MG, 6X/DAY
  7. POTASSIUM [Concomitant]
     Indication: CARDIAC FAILURE CONGESTIVE
     Dosage: 20 MG, DAILY
  8. METHADONE [Concomitant]
     Indication: PAIN
     Dosage: 20 MG, 3X/DAY
  9. PROZAC [Concomitant]
     Indication: ANXIETY

REACTIONS (4)
  - FATIGUE [None]
  - DRUG INEFFECTIVE [None]
  - BLOOD PRESSURE DECREASED [None]
  - INCORRECT PRODUCT STORAGE [None]
